FAERS Safety Report 16837857 (Version 1)
Quarter: 2019Q3

REPORT INFORMATION
  Report Type: Spontaneous
  Country: US (occurrence: US)
  Receive Date: 20190731
  Receipt Date: 20190731
  Transmission Date: 20191005
  Serious: No
  Sender: FDA-Public Use
  Company Number: None

PATIENT
  Age: 81 Year
  Sex: Male

DRUGS (2)
  1. KCL [Suspect]
     Active Substance: POTASSIUM CHLORIDE
  2. K-DUR [Suspect]
     Active Substance: POTASSIUM CHLORIDE

REACTIONS (4)
  - Product communication issue [None]
  - Device occlusion [None]
  - Wrong technique in product usage process [None]
  - Product availability issue [None]
